FAERS Safety Report 5561547-8 (Version None)
Quarter: 2007Q4

REPORT INFORMATION
  Report Type: 
  Country: None (occurrence: None)
  Receive Date: 20071215
  Receipt Date: 20071017
  Transmission Date: 20080405
  Serious: No
  Sender: FDA-Public Use
  Company Number: US-AMGEN-KDL248464

PATIENT
  Sex: Female

DRUGS (2)
  1. ENBREL [Suspect]
     Indication: RHEUMATOID ARTHRITIS
     Route: 058
     Dates: start: 20070701
  2. ARAVA [Concomitant]
     Dates: start: 20050101

REACTIONS (3)
  - INFLUENZA LIKE ILLNESS [None]
  - JOINT WARMTH [None]
  - PYREXIA [None]
